FAERS Safety Report 5988816-1 (Version None)
Quarter: 2008Q4

REPORT INFORMATION
  Report Type: 
  Country: None (occurrence: None)
  Receive Date: 20081210
  Receipt Date: 20081002
  Transmission Date: 20090506
  Serious: Yes (Other)
  Sender: FDA-Public Use
  Company Number: US-AMGEN-US311170

PATIENT
  Sex: Male

DRUGS (2)
  1. ENBREL [Suspect]
     Indication: PSORIATIC ARTHROPATHY
     Route: 058
  2. METHOTREXATE [Concomitant]
     Route: 048

REACTIONS (3)
  - BOWEN'S DISEASE [None]
  - INJECTION SITE ERYTHEMA [None]
  - URTICARIA [None]
